FAERS Safety Report 4389575-9 (Version None)
Quarter: 2004Q2

REPORT INFORMATION
  Report Type: 
  Country: None (occurrence: None)
  Receive Date: 20040629
  Receipt Date: 20040423
  Transmission Date: 20050107
  Serious: Yes (Hospitalization)
  Sender: FDA-Public Use
  Company Number: US-JNJFOC-20040301127

PATIENT
  Age: 49 Year
  Sex: Male
  Weight: 74.8435 kg

DRUGS (3)
  1. DURAGESIC [Suspect]
     Indication: PAIN
     Dosage: 50 UG/HR, TRANSDERMAL
     Route: 062
     Dates: start: 20040205, end: 20040206
  2. ELAVIL [Concomitant]
  3. LORTAB [Concomitant]

REACTIONS (10)
  - BRADYCARDIA [None]
  - COLD SWEAT [None]
  - DISORIENTATION [None]
  - HYPERHIDROSIS [None]
  - HYPOVENTILATION [None]
  - NAUSEA [None]
  - PALLOR [None]
  - UNEVALUABLE EVENT [None]
  - VOMITING [None]
  - WEIGHT DECREASED [None]
